FAERS Safety Report 21829189 (Version 1)
Quarter: 2023Q1

REPORT INFORMATION
  Report Type: Spontaneous
  Country: US (occurrence: US)
  Receive Date: 20230106
  Receipt Date: 20230106
  Transmission Date: 20230418
  Serious: No
  Sender: FDA-Public Use
  Company Number: US-COOPERSURGICAL, INC.-US-2022CPS001935

PATIENT
  Age: 30 Year
  Sex: Female
  Weight: 58.503 kg

DRUGS (2)
  1. PARAGARD T 380A [Suspect]
     Active Substance: COPPER
     Indication: Product used for unknown indication
     Dosage: UNK
     Route: 015
     Dates: start: 20211129, end: 202111
  2. PARAGARD T 380A [Suspect]
     Active Substance: COPPER
     Dosage: UNK
     Route: 015
     Dates: start: 202202

REACTIONS (3)
  - Device expulsion [Recovered/Resolved]
  - Abnormal uterine bleeding [Unknown]
  - Pelvic pain [Unknown]

NARRATIVE: CASE EVENT DATE: 20211101
